FAERS Safety Report 9806319 (Version 1)
Quarter: 2014Q1

REPORT INFORMATION
  Report Type: Spontaneous
  Country: US (occurrence: US)
  Receive Date: 20140109
  Receipt Date: 20140109
  Transmission Date: 20141002
  Serious: Yes (Hospitalization)
  Sender: FDA-Public Use
  Company Number: US-BRISTOL-MYERS SQUIBB COMPANY-19969682

PATIENT
  Sex: Female

DRUGS (2)
  1. ELIQUIS [Suspect]
     Indication: CARDIAC PACEMAKER INSERTION
     Route: 048
     Dates: end: 2013
  2. KOMBIGLYZE XR [Suspect]
     Indication: BLOOD GLUCOSE
     Dosage: 1 DF = 2.5/1000 MG
     Dates: end: 2013

REACTIONS (6)
  - Epistaxis [Unknown]
  - Vaginal haemorrhage [Unknown]
  - Thyroid haemorrhage [Unknown]
  - Thyroid neoplasm [Unknown]
  - Pyrexia [Unknown]
  - Anuria [Unknown]
